FAERS Safety Report 4906334-6 (Version None)
Quarter: 2006Q1

REPORT INFORMATION
  Report Type: 
  Country: None (occurrence: None)
  Receive Date: 20060206
  Receipt Date: 20060127
  Transmission Date: 20060701
  Serious: Yes (Other)
  Sender: FDA-Public Use
  Company Number: 2006-01-1650

PATIENT
  Age: 40 Year
  Sex: Male

DRUGS (3)
  1. TEMODAL [Suspect]
     Indication: GLIOBLASTOMA
     Dosage: MG ORAL
     Route: 048
     Dates: start: 20051201, end: 20060106
  2. RADIATION THERAPY [Suspect]
     Indication: GLIOBLASTOMA
     Dosage: X-RAY THERAPY
  3. DEPAKENE [Concomitant]

REACTIONS (1)
  - HEPATITIS [None]
